FAERS Safety Report 25603722 (Version 2)
Quarter: 2025Q3

REPORT INFORMATION
  Report Type: Spontaneous
  Country: JP (occurrence: JP)
  Receive Date: 20250725
  Receipt Date: 20250821
  Transmission Date: 20251020
  Serious: Yes (Hospitalization, Other)
  Sender: TAKEDA
  Company Number: JP-TAKEDA-2025TJP007481

PATIENT
  Age: 8 Decade
  Sex: Male

DRUGS (1)
  1. FRUZAQLA [Suspect]
     Active Substance: FRUQUINTINIB
     Indication: Colon cancer
     Dosage: 5 MILLIGRAM, QD
     Dates: start: 20250709, end: 20250716

REACTIONS (2)
  - Cardiac failure [Recovered/Resolved]
  - Hypertension [Recovering/Resolving]

NARRATIVE: CASE EVENT DATE: 20250716
